FAERS Safety Report 4398119-7 (Version None)
Quarter: 2004Q3

REPORT INFORMATION
  Report Type: 
  Country: None (occurrence: None)
  Receive Date: 20040713
  Receipt Date: 20040629
  Transmission Date: 20050211
  Serious: Yes (Other)
  Sender: FDA-Public Use
  Company Number: 2004221514US

PATIENT
  Age: 4 Year
  Sex: Female

DRUGS (3)
  1. ZYVOX [Suspect]
     Indication: DRUG USE FOR UNKNOWN INDICATION
     Dosage: 140 MG, BID; ORAL
     Route: 048
  2. FLUOXETINE [Suspect]
     Indication: ACUTE STRESS DISORDER
     Dosage: 5 MG, DAILY; ORAL
     Route: 048
  3. FENTANYL [Concomitant]

REACTIONS (2)
  - DRUG INTERACTION [None]
  - SEROTONIN SYNDROME [None]
